FAERS Safety Report 7738209-1 (Version None)
Quarter: 2011Q3

REPORT INFORMATION
  Report Type: 
  Country: None (occurrence: None)
  Receive Date: 20110906
  Receipt Date: 20110822
  Transmission Date: 20111222
  Serious: Yes (Other)
  Sender: FDA-Public Use
  Company Number: 1000023193

PATIENT
  Age: 23 Year
  Sex: Female

DRUGS (2)
  1. FOSFOMYCIN (FOSFOMYCIN TROMETAMOL) (3 GRAM, POWDER) [Suspect]
     Indication: CYSTITIS
     Dosage: (3000 MG, ONCE, ORAL
     Route: 048
     Dates: start: 20110816, end: 20110816
  2. HORMONAL CONTRACEPTIVES (HORMONAL CONTRACEPTIVES) [Concomitant]

REACTIONS (3)
  - VOMITING [None]
  - DIARRHOEA [None]
  - GENITAL ERYTHEMA [None]
